FAERS Safety Report 7403592-3 (Version None)
Quarter: 2011Q1

REPORT INFORMATION
  Report Type: 
  Country: None (occurrence: None)
  Receive Date: 20110301
  Receipt Date: 20100118
  Transmission Date: 20110831
  Serious: Yes (Hospitalization)
  Sender: FDA-Public Use
  Company Number: US-JNJFOC-20100106221

PATIENT
  Sex: Female

DRUGS (2)
  1. IBUPROFEN [Suspect]
     Indication: LOWER LIMB FRACTURE
  2. PREMPAK C (ESTROGENS CONJUGATED W/NORGESTREL) [Concomitant]

REACTIONS (1)
  - RENAL DISORDER [None]
